FAERS Safety Report 6580197-8 (Version None)
Quarter: 2010Q1

REPORT INFORMATION
  Report Type: 
  Country: None (occurrence: None)
  Receive Date: 20100203
  Receipt Date: 20100128
  Transmission Date: 20100710
  Serious: Yes (Death, Other)
  Sender: FDA-Public Use
  Company Number: 2010SP006047

PATIENT
  Age: 73 Year
  Sex: Male

DRUGS (13)
  1. TEMODAL [Suspect]
     Indication: GLIOBLASTOMA
     Dosage: 150 MG; ; PO
     Route: 048
     Dates: start: 20091126, end: 20091224
  2. NEUPOGEN [Concomitant]
  3. CIPRO [Concomitant]
  4. DIFLUCAN [Concomitant]
  5. HELEX [Concomitant]
  6. CARVELOL [Concomitant]
  7. LOSARTIC PLUS [Concomitant]
  8. ATORVASTATIN CALCIUM [Concomitant]
  9. FUROSEMID [Concomitant]
  10. LACIPIL [Concomitant]
  11. ASPIRIN [Concomitant]
  12. APIDRA [Concomitant]
  13. LANTUS [Concomitant]

REACTIONS (1)
  - PANCYTOPENIA [None]
